FAERS Safety Report 17604700 (Version 4)
Quarter: 2020Q4

REPORT INFORMATION
  Report Type: Spontaneous
  Country: US (occurrence: US)
  Receive Date: 20200331
  Receipt Date: 20201104
  Transmission Date: 20210113
  Serious: No
  Sender: FDA-Public Use
  Company Number: US-VERTEX PHARMACEUTICALS-2020-006821

PATIENT
  Age: 25 Year
  Sex: Female
  Weight: 70 kg

DRUGS (12)
  1. HYPERTONIC SALINE SOLUTION [Concomitant]
     Active Substance: SODIUM CHLORIDE
  2. TOBRAMYCIN. [Concomitant]
     Active Substance: TOBRAMYCIN
  3. AZTREONAM. [Concomitant]
     Active Substance: AZTREONAM
  4. DORNASE ALFA. [Concomitant]
     Active Substance: DORNASE ALFA
  5. AZITHROMYCIN ANHYDROUS. [Concomitant]
     Active Substance: AZITHROMYCIN ANHYDROUS
  6. CREON [Concomitant]
     Active Substance: PANCRELIPASE AMYLASE\PANCRELIPASE LIPASE\PANCRELIPASE PROTEASE
  7. PREVACID [Concomitant]
     Active Substance: LANSOPRAZOLE
  8. BREO ELLIPTA [Concomitant]
     Active Substance: FLUTICASONE FUROATE\VILANTEROL TRIFENATATE
  9. XOPENEX [Concomitant]
     Active Substance: LEVALBUTEROL HYDROCHLORIDE
  10. URSODIOL. [Concomitant]
     Active Substance: URSODIOL
  11. TRIKAFTA [Suspect]
     Active Substance: ELEXACAFTOR\IVACAFTOR\TEZACAFTOR
     Indication: CYSTIC FIBROSIS
     Dosage: 2 TABS 100 MG ELEXACAFTOR/ 50 MG TEZACAFTOR/ 75 MG IVACAFTOR AM, 1 TAB 150MG IVACAFTOR PM, BID
     Route: 048
     Dates: start: 20200320
  12. XOLAIR [Concomitant]
     Active Substance: OMALIZUMAB
     Dosage: ONCE EVERY 2 WEEKS

REACTIONS (2)
  - Rash [Recovered/Resolved]
  - Peripheral swelling [Unknown]

NARRATIVE: CASE EVENT DATE: 202003
